FAERS Safety Report 13275875 (Version 1)
Quarter: 2017Q1

REPORT INFORMATION
  Report Type: Spontaneous
  Country: TR (occurrence: TR)
  Receive Date: 20170228
  Receipt Date: 20170228
  Transmission Date: 20170428
  Serious: Yes (Other)
  Sender: FDA-Public Use
  Company Number: TR-ROCHE-1898520

PATIENT
  Sex: Male

DRUGS (1)
  1. RANIBIZUMAB [Suspect]
     Active Substance: RANIBIZUMAB
     Indication: RETINOPATHY OF PREMATURITY
     Dosage: 0.25 MG, UNK
     Route: 031

REACTIONS (3)
  - Retinal detachment [Unknown]
  - Drug ineffective [Unknown]
  - Retinopathy of prematurity [Unknown]
